FAERS Safety Report 8975930 (Version 1)
Quarter: 2012Q4

REPORT INFORMATION
  Report Type: 
  Country: US (occurrence: US)
  Receive Date: 20121219
  Receipt Date: 20121219
  Transmission Date: 20130627
  Serious: Yes (Other)
  Sender: FDA-Public Use
  Company Number: CHPA2012US025215

PATIENT
  Age: 21 Year
  Sex: Female

DRUGS (2)
  1. EXCEDRIN MIGRAINE [Suspect]
     Indication: MIGRAINE
     Dosage: 2 DF, TID
     Route: 048
     Dates: start: 20121130, end: 20121130
  2. ANTIBIOTICS [Concomitant]
     Indication: SINUSITIS
     Dosage: UNK, UNK

REACTIONS (3)
  - Ear infection [Not Recovered/Not Resolved]
  - Swelling face [Not Recovered/Not Resolved]
  - Prescribed overdose [Unknown]
